FAERS Safety Report 4542807-6 (Version None)
Quarter: 2004Q4

REPORT INFORMATION
  Report Type: 
  Country: None (occurrence: None)
  Receive Date: 20041229
  Receipt Date: 20041223
  Transmission Date: 20050328
  Serious: Yes (Hospitalization)
  Sender: FDA-Public Use
  Company Number: HQWYE183923DEC04

PATIENT

DRUGS (4)
  1. RAPAMUNE [Suspect]
     Indication: IMMUNOSUPPRESSANT DRUG THERAPY
     Dosage: 9 MG 1X 1 DAY, ORAL
     Route: 048
     Dates: start: 20041210
  2. RAPAMUNE [Suspect]
     Indication: PROPHYLAXIS AGAINST TRANSPLANT REJECTION
     Dosage: 9 MG 1X 1 DAY, ORAL
     Route: 048
     Dates: start: 20041210
  3. PROGRAF [Concomitant]
  4. PREDNISONE [Concomitant]

REACTIONS (2)
  - HYDRONEPHROSIS [None]
  - POST PROCEDURAL COMPLICATION [None]
